FAERS Safety Report 5083420-4 (Version None)
Quarter: 2006Q3

REPORT INFORMATION
  Report Type: 
  Country: None (occurrence: None)
  Receive Date: 20060818
  Receipt Date: 20060808
  Transmission Date: 20061208
  Serious: Yes (Other)
  Sender: FDA-Public Use
  Company Number: PHEH2006US10151

PATIENT
  Age: 55 Year
  Sex: Female
  Weight: 84.353 kg

DRUGS (1)
  1. ZOMETA [Suspect]
     Indication: METASTASES TO BONE
     Dosage: 4 MG, QMO
     Dates: start: 20050203, end: 20060316

REACTIONS (3)
  - HYPOAESTHESIA ORAL [None]
  - OSTEONECROSIS [None]
  - PAIN IN JAW [None]
